FAERS Safety Report 24560304 (Version 1)
Quarter: 2024Q4

REPORT INFORMATION
  Report Type: Report from Study
  Country: DE (occurrence: DE)
  Receive Date: 20241029
  Receipt Date: 20241029
  Transmission Date: 20250114
  Serious: Yes (Hospitalization)
  Sender: ACCORD
  Company Number: None

PATIENT
  Age: 80 Year
  Sex: Female
  Weight: 48 kg

DRUGS (4)
  1. CARBOPLATIN [Suspect]
     Active Substance: CARBOPLATIN
     Indication: Breast cancer
     Dosage: DATE OF LAST APPLICATION PRIOR EVENT: 15-OCT-2020?ONGOING
     Dates: start: 20200803
  2. TRASTUZUMAB [Suspect]
     Active Substance: TRASTUZUMAB
     Indication: Breast cancer
     Dosage: ONGOING, DATE OF LAST APPLICATION PRIOR EVENT: 15-OCT-2020
     Dates: start: 20200803
  3. PERTUZUMAB [Suspect]
     Active Substance: PERTUZUMAB
     Indication: Breast cancer
     Dosage: DATE OF LAST APPLICATION PRIOR EVENT: 15-OCT-2020?ONGOING
     Dates: start: 20200803
  4. PACLITAXEL [Suspect]
     Active Substance: PACLITAXEL
     Indication: Breast cancer
     Dosage: DATE OF LAST APPLICATION PRIOR EVENT: 15-OCT-2020?ONGOING
     Dates: start: 20200803

REACTIONS (4)
  - Urinary tract infection [Unknown]
  - Cystitis [Not Recovered/Not Resolved]
  - Oropharyngeal candidiasis [Unknown]
  - Haematuria [Unknown]

NARRATIVE: CASE EVENT DATE: 20201015
